FAERS Safety Report 24768919 (Version 9)
Quarter: 2025Q1

REPORT INFORMATION
  Report Type: Spontaneous
  Country: US (occurrence: US)
  Receive Date: 20241224
  Receipt Date: 20250321
  Transmission Date: 20250409
  Serious: Yes (Death, Hospitalization)
  Sender: ROCHE
  Company Number: US-ROCHE-10000163187

PATIENT
  Age: 77 Year
  Sex: Female
  Weight: 74.84 kg

DRUGS (21)
  1. ITOVEBI [Suspect]
     Active Substance: INAVOLISIB
     Indication: Breast cancer metastatic
     Route: 065
     Dates: start: 20241125, end: 20241130
  2. ITOVEBI [Suspect]
     Active Substance: INAVOLISIB
     Indication: Hormone receptor positive breast cancer
  3. POTASSIUM CHLORIDE [Concomitant]
     Active Substance: POTASSIUM CHLORIDE
     Indication: Hypokalaemia
  4. AMLODIPINE [Concomitant]
     Active Substance: AMLODIPINE BESYLATE
     Indication: Hypertension
  5. XGEVA [Concomitant]
     Active Substance: DENOSUMAB
     Indication: Bone lesion
  6. IMODIUM [Concomitant]
     Active Substance: LOPERAMIDE HYDROCHLORIDE
     Indication: Diarrhoea
  7. ASPIRIN [Concomitant]
     Active Substance: ASPIRIN
  8. LIPITOR [Concomitant]
     Active Substance: ATORVASTATIN CALCIUM
  9. MAGNESIUM [Concomitant]
     Active Substance: MAGNESIUM
  10. METAMUCIL [Concomitant]
     Active Substance: PLANTAGO SEED
     Route: 048
  11. PRILOSEC [Concomitant]
     Active Substance: OMEPRAZOLE MAGNESIUM
  12. VITAMIN D3 [Concomitant]
     Active Substance: CHOLECALCIFEROL
  13. VITAMIN E [Concomitant]
     Active Substance: .ALPHA.-TOCOPHEROL
  14. METFORMIN [Concomitant]
     Active Substance: METFORMIN HYDROCHLORIDE
  15. LISINOPRIL [Concomitant]
     Active Substance: LISINOPRIL
  16. LOPERAMIDE [Concomitant]
     Active Substance: LOPERAMIDE
  17. CHLORTHALIDONE [Concomitant]
     Active Substance: CHLORTHALIDONE
  18. KISQALI [Concomitant]
     Active Substance: RIBOCICLIB
  19. CEFEPIME [Concomitant]
     Active Substance: CEFEPIME HYDROCHLORIDE
     Indication: Encephalopathy
  20. ROCEPHIN [Concomitant]
     Active Substance: CEFTRIAXONE SODIUM
     Indication: Encephalopathy
  21. FLAGYL [Concomitant]
     Active Substance: METRONIDAZOLE\METRONIDAZOLE HYDROCHLORIDE
     Indication: Encephalopathy

REACTIONS (10)
  - Hyperglycaemia [Unknown]
  - Diabetic ketoacidosis [Unknown]
  - Pneumonia staphylococcal [Unknown]
  - Acute respiratory failure [Unknown]
  - Product use issue [Unknown]
  - Septic shock [Unknown]
  - Sepsis [Unknown]
  - Pneumonia aspiration [Unknown]
  - Product prescribing issue [Unknown]
  - Death [Fatal]

NARRATIVE: CASE EVENT DATE: 20241209
